FAERS Safety Report 5975827-5 (Version None)
Quarter: 2008Q4

REPORT INFORMATION
  Report Type: 
  Country: None (occurrence: None)
  Receive Date: 20081202
  Receipt Date: 20081126
  Transmission Date: 20090506
  Serious: Yes (Hospitalization, Congenital Anomaly)
  Sender: FDA-Public Use
  Company Number: A0662895A

PATIENT
  Sex: Female
  Weight: 3 kg

DRUGS (8)
  1. PAXIL [Suspect]
     Indication: DRUG USE FOR UNKNOWN INDICATION
     Dosage: 40MG PER DAY
     Dates: start: 20030101, end: 20040101
  2. VITAMIN AND MINERAL PRENATAL SUPPLEMENT W/ FOLIC ACID CAP [Concomitant]
     Indication: PRENATAL CARE
  3. DIGOXIN [Concomitant]
     Dosage: .6ML TWICE PER DAY
  4. LASIX [Concomitant]
  5. ALDACTONE [Concomitant]
     Dosage: 5MG TWICE PER DAY
  6. ASPIRIN [Concomitant]
     Dosage: 81MG TWICE PER DAY
  7. IRON [Concomitant]
     Dosage: .32MG PER DAY
  8. ALBUTEROL [Concomitant]

REACTIONS (9)
  - ATRIAL SEPTAL DEFECT [None]
  - CARDIAC FAILURE CONGESTIVE [None]
  - CLEFT PALATE [None]
  - COARCTATION OF THE AORTA [None]
  - DRUG EXPOSURE DURING PREGNANCY [None]
  - LUNG DISORDER [None]
  - PATENT DUCTUS ARTERIOSUS [None]
  - PULMONARY HYPERTENSION [None]
  - VENTRICULAR SEPTAL DEFECT [None]
